FAERS Safety Report 9276931 (Version 3)
Quarter: 2013Q3

REPORT INFORMATION
  Report Type: Spontaneous
  Country: US (occurrence: US)
  Receive Date: 20130507
  Receipt Date: 20130830
  Transmission Date: 20140515
  Serious: Yes (Other)
  Sender: FDA-Public Use
  Company Number: CHPA2012US026490

PATIENT
  Age: 68 Year
  Sex: Female

DRUGS (2)
  1. IBUPROFEN [Suspect]
     Indication: TENDONITIS
     Dosage: UNK, BID
     Route: 048
  2. MOBIC [Concomitant]
     Indication: TENDONITIS

REACTIONS (5)
  - Meniscus injury [Recovered/Resolved]
  - Post procedural swelling [Recovered/Resolved]
  - Gastrooesophageal reflux disease [Recovered/Resolved]
  - Iron deficiency anaemia [Recovered/Resolved]
  - Abdominal pain upper [Recovered/Resolved]
